FAERS Safety Report 6914996-7 (Version None)
Quarter: 2010Q3

REPORT INFORMATION
  Report Type: 
  Country: None (occurrence: None)
  Receive Date: 20100809
  Receipt Date: 20100729
  Transmission Date: 20110219
  Serious: Yes (Hospitalization, Other)
  Sender: FDA-Public Use
  Company Number: AU-BAUSCH-2010BL000644

PATIENT
  Age: 48 Year
  Sex: Female

DRUGS (1)
  1. FLUOCINOLONE ACETONIDE [Suspect]
     Indication: UVEITIS
     Route: 047
     Dates: start: 20030404, end: 20100112

REACTIONS (6)
  - BLINDNESS [None]
  - DEVICE BREAKAGE [None]
  - PRODUCT QUALITY ISSUE [None]
  - RETINAL TEAR [None]
  - VITRECTOMY [None]
  - VITREOUS FLOATERS [None]
